FAERS Safety Report 9397778 (Version 2)
Quarter: 2013Q3

REPORT INFORMATION
  Report Type: Spontaneous
  Country: US (occurrence: US)
  Receive Date: 20130712
  Receipt Date: 20130730
  Transmission Date: 20140515
  Serious: Yes (Death, Hospitalization, Other)
  Sender: FDA-Public Use
  Company Number: US-B.I. PHARMACEUTICALS,INC./RIDGEFIELD-2013-BI-19861BP

PATIENT
  Age: 87 Year
  Sex: Male

DRUGS (8)
  1. PRADAXA [Suspect]
     Indication: ATRIAL FIBRILLATION
     Dosage: 300 MG
     Route: 048
  2. LISINOPRIL [Concomitant]
     Dosage: DAILY DOSE: 50000 UNIT ONCE A WEEK
  3. PROPRANOLOL [Concomitant]
  4. SYNTHROID [Concomitant]
  5. ALENDRONATE [Concomitant]
  6. DIGOXIN [Concomitant]
  7. PEPCID [Concomitant]
  8. VITAMIN D [Concomitant]
     Dosage: 50000 U

REACTIONS (8)
  - Intestinal ischaemia [Fatal]
  - Mesenteric arterial occlusion [Fatal]
  - Sepsis [Fatal]
  - Acute respiratory failure [Fatal]
  - Aspiration [Fatal]
  - Pleural effusion [Fatal]
  - Intestinal obstruction [Unknown]
  - Gastrointestinal haemorrhage [Recovered/Resolved]
